FAERS Safety Report 19140201 (Version 1)
Quarter: 2021Q2

REPORT INFORMATION
  Report Type: Spontaneous
  Country: US (occurrence: US)
  Receive Date: 20210415
  Receipt Date: 20210415
  Transmission Date: 20210717
  Serious: Yes (Life-Threatening, Hospitalization, Other)
  Sender: FDA-Public Use
  Company Number: None

PATIENT
  Age: 68 Year
  Sex: Male
  Weight: 109.35 kg

DRUGS (2)
  1. BAMLANIVIMAB 700 MG / ETESEVIMAB 1400 MG IN 160ML NS BAG [Suspect]
     Active Substance: BAMLANIVIMAB\ETESEVIMAB
     Indication: COVID-19
     Dosage: ?          OTHER FREQUENCY:ONCE;?
     Route: 041
     Dates: start: 20210405, end: 20210405
  2. BAMLANIVIMAB 700 MG / ETESEVIMAB 1400 MG IN 160ML NS BAG [Suspect]
     Active Substance: BAMLANIVIMAB\ETESEVIMAB
     Indication: COVID-19
     Dosage: ?          OTHER FREQUENCY:ONCE;?
     Route: 041
     Dates: start: 20210405, end: 20210405

REACTIONS (6)
  - Abdominal pain [None]
  - Chest discomfort [None]
  - Oxygen saturation decreased [None]
  - Dyspnoea [None]
  - Pneumonia [None]
  - Feeling abnormal [None]

NARRATIVE: CASE EVENT DATE: 20210414
